FAERS Safety Report 9813203 (Version 1)
Quarter: 2014Q1

REPORT INFORMATION
  Report Type: Spontaneous
  Country: US (occurrence: US)
  Receive Date: 20140113
  Receipt Date: 20140113
  Transmission Date: 20141002
  Serious: Yes (Death)
  Sender: FDA-Public Use
  Company Number: US-BAYER-2014-002771

PATIENT
  Age: 44 Year
  Sex: Female

DRUGS (3)
  1. DIPHENHYDRAMINE HYDROCHLORIDE [Suspect]
     Route: 048
  2. FENTANYL [Suspect]
     Route: 062
  3. VENLAFAXINE [Suspect]
     Route: 048

REACTIONS (2)
  - Intentional drug misuse [Fatal]
  - Intentional overdose [Fatal]
